FAERS Safety Report 11635403 (Version 2)
Quarter: 2015Q4

REPORT INFORMATION
  Report Type: Spontaneous
  Country: US (occurrence: US)
  Receive Date: 20151016
  Receipt Date: 20151112
  Transmission Date: 20160304
  Serious: Yes (Other)
  Sender: FDA-Public Use
  Company Number: US-ROCHE-1645380

PATIENT
  Sex: Male
  Weight: 117.13 kg

DRUGS (3)
  1. RITUXAN [Suspect]
     Active Substance: RITUXIMAB
     Indication: GRANULOMATOSIS WITH POLYANGIITIS
     Dosage: 2 DOSES, 2 WEEKS APART EVERY 6 MONTHS
     Route: 042
     Dates: start: 20130409
  2. DAPSONE. [Concomitant]
     Active Substance: DAPSONE
     Route: 048
     Dates: start: 201301
  3. FLUCONAZOLE. [Concomitant]
     Active Substance: FLUCONAZOLE
     Route: 048
     Dates: start: 201103

REACTIONS (1)
  - Parkinson^s disease [Not Recovered/Not Resolved]

NARRATIVE: CASE EVENT DATE: 2015
